FAERS Safety Report 15158865 (Version 1)
Quarter: 2018Q3

REPORT INFORMATION
  Report Type: Spontaneous
  Country: MX (occurrence: MX)
  Receive Date: 20180718
  Receipt Date: 20180718
  Transmission Date: 20181010
  Serious: Yes (Other)
  Sender: FDA-Public Use
  Company Number: MX-PFIZER INC-2018286761

PATIENT
  Age: 45 Year
  Sex: Female

DRUGS (1)
  1. IGEF (CELECOXIB) [Suspect]
     Active Substance: CELECOXIB
     Indication: POSTOPERATIVE CARE

REACTIONS (1)
  - Renal failure [Unknown]
